FAERS Safety Report 4997522-1 (Version None)
Quarter: 2006Q2

REPORT INFORMATION
  Report Type: 
  Country: None (occurrence: None)
  Receive Date: 20060509
  Receipt Date: 20060428
  Transmission Date: 20061013
  Serious: Yes (Hospitalization, Disabling)
  Sender: FDA-Public Use
  Company Number: US-MERCK-0605USA00054

PATIENT
  Age: 43 Year
  Sex: Female
  Weight: 57 kg

DRUGS (6)
  1. VIOXX [Suspect]
     Indication: ARTHRITIS
     Route: 048
     Dates: start: 20011201, end: 20031201
  2. TRILEPTAL [Concomitant]
     Route: 065
  3. KLONOPIN [Concomitant]
     Route: 065
  4. CELEBREX [Concomitant]
     Route: 065
  5. AMBIEN [Concomitant]
     Route: 065
  6. PREMARIN [Concomitant]
     Route: 065

REACTIONS (5)
  - AMNESIA [None]
  - CONVULSION [None]
  - EPILEPSY [None]
  - IMMUNE SYSTEM DISORDER [None]
  - MYOCARDIAL INFARCTION [None]
